FAERS Safety Report 24611830 (Version 1)
Quarter: 2024Q4

REPORT INFORMATION
  Report Type: Spontaneous
  Country: IT (occurrence: IT)
  Receive Date: 20241113
  Receipt Date: 20241113
  Transmission Date: 20250114
  Serious: Yes (Hospitalization, Other)
  Sender: AMGEN
  Company Number: IT-AMGEN-ITASP2024221575

PATIENT

DRUGS (2)
  1. ADALIMUMAB [Suspect]
     Active Substance: ADALIMUMAB
     Indication: Psoriasis
     Dosage: UNK
     Route: 065
  2. ADALIMUMAB [Suspect]
     Active Substance: ADALIMUMAB
     Indication: Psoriatic arthropathy

REACTIONS (26)
  - Splenomegaly [Unknown]
  - Carcinoembryonic antigen increased [Unknown]
  - Pneumonia [Unknown]
  - Interstitial lung disease [Unknown]
  - Red blood cell sedimentation rate abnormal [Unknown]
  - Cyanosis [Unknown]
  - Transaminases increased [Unknown]
  - Haemoglobin decreased [Unknown]
  - Limb discomfort [Unknown]
  - Asthenia [Unknown]
  - Diarrhoea [Unknown]
  - Oedema peripheral [Unknown]
  - Pruritus [Unknown]
  - Vertigo [Unknown]
  - Herpes virus infection [Unknown]
  - Drug ineffective [Unknown]
  - Administration site reaction [Unknown]
  - Headache [Unknown]
  - Candida infection [Unknown]
  - Back pain [Unknown]
  - Nasopharyngitis [Unknown]
  - Vomiting [Unknown]
  - Nausea [Unknown]
  - Alopecia [Unknown]
  - Dyspnoea [Unknown]
  - Paraesthesia [Unknown]
